FAERS Safety Report 4865836-1 (Version None)
Quarter: 2005Q4

REPORT INFORMATION
  Report Type: 
  Country: None (occurrence: None)
  Receive Date: 20051220
  Receipt Date: 20051208
  Transmission Date: 20060501
  Serious: Yes (Other)
  Sender: FDA-Public Use
  Company Number: 2005039282

PATIENT
  Sex: Female
  Weight: 3.13 kg

DRUGS (6)
  1. DOSTINEX [Suspect]
     Indication: ILL-DEFINED DISORDER
     Dosage: ORAL
     Route: 048
  2. VITAMINS [Concomitant]
  3. INIMUR (NIFURATEL) [Concomitant]
  4. MAGNESIUM [Concomitant]
  5. VITAFERRO (ASCORBIC ACID, FERROUS SULFATE) [Concomitant]
  6. EMBOLEX [Concomitant]

REACTIONS (5)
  - CAESAREAN SECTION [None]
  - HAEMORRHAGE [None]
  - PREMATURE SEPARATION OF PLACENTA [None]
  - THREATENED LABOUR [None]
  - VAGINAL HAEMORRHAGE [None]
